FAERS Safety Report 10314524 (Version 2)
Quarter: 2014Q4

REPORT INFORMATION
  Report Type: Spontaneous
  Country: US (occurrence: US)
  Receive Date: 20140718
  Receipt Date: 20141008
  Transmission Date: 20150528
  Serious: No
  Sender: FDA-Public Use
  Company Number: US-TEVA-495473USA

PATIENT
  Age: 18 Year
  Sex: Female
  Weight: 68.55 kg

DRUGS (2)
  1. PARAGARD T380A [Suspect]
     Active Substance: COPPER
     Route: 015
     Dates: start: 20140715, end: 20140812
  2. PARAGARD T380A [Suspect]
     Active Substance: COPPER
     Indication: CONTRACEPTION
     Route: 015
     Dates: start: 20140710, end: 20140715

REACTIONS (2)
  - Vaginal haemorrhage [Unknown]
  - Device expulsion [Recovered/Resolved]

NARRATIVE: CASE EVENT DATE: 20140713
